FAERS Safety Report 9392742 (Version 1)
Quarter: 2013Q3

REPORT INFORMATION
  Report Type: Spontaneous
  Country: US (occurrence: None)
  Receive Date: 20130708
  Receipt Date: 20130708
  Transmission Date: 20140515
  Serious: Yes (Life-Threatening)
  Sender: FDA-Public Use
  Company Number: None

PATIENT
  Age: 65 Year
  Sex: Male
  Weight: 118.6 kg

DRUGS (1)
  1. WARFARIN [Suspect]
     Indication: ATRIAL FIBRILLATION
     Route: 048
     Dates: start: 20121109, end: 20130514

REACTIONS (5)
  - Haemorrhage [None]
  - Musculoskeletal pain [None]
  - Dyspnoea [None]
  - International normalised ratio increased [None]
  - Muscle atrophy [None]
